FAERS Safety Report 5243804-8 (Version None)
Quarter: 2007Q1

REPORT INFORMATION
  Report Type: 
  Country: None (occurrence: None)
  Receive Date: 20070222
  Receipt Date: 20070212
  Transmission Date: 20070707
  Serious: Yes (Other)
  Sender: FDA-Public Use
  Company Number: SE-BRISTOL-MYERS SQUIBB COMPANY-13677059

PATIENT
  Age: 55 Year
  Sex: Male

DRUGS (7)
  1. CYCLOPHOSPHAMIDE [Suspect]
     Indication: ACUTE LYMPHOCYTIC LEUKAEMIA
     Route: 042
  2. BUSULPHAN [Concomitant]
     Indication: ACUTE LYMPHOCYTIC LEUKAEMIA
  3. ANTITHYMOCYTE GLOBULIN [Concomitant]
     Indication: ACUTE LYMPHOCYTIC LEUKAEMIA
  4. MESNA [Concomitant]
     Indication: FLUID REPLACEMENT
  5. MESNA [Concomitant]
     Indication: PROPHYLAXIS
  6. GLUCOSE [Concomitant]
     Indication: FLUID REPLACEMENT
  7. GLUCOSE [Concomitant]
     Indication: PROPHYLAXIS

REACTIONS (7)
  - ELECTROLYTE IMBALANCE [None]
  - HICCUPS [None]
  - HYPONATRAEMIA [None]
  - INSOMNIA [None]
  - NAUSEA [None]
  - PANCYTOPENIA [None]
  - VOMITING [None]
